FAERS Safety Report 6501905-8 (Version None)
Quarter: 2009Q4

REPORT INFORMATION
  Report Type: 
  Country: None (occurrence: None)
  Receive Date: 20091216
  Receipt Date: 20091204
  Transmission Date: 20100525
  Serious: Yes (Hospitalization, Other)
  Sender: FDA-Public Use
  Company Number: PHBS2005JP09104

PATIENT
  Sex: Male

DRUGS (11)
  1. TEGRETOL [Suspect]
     Indication: EPILEPTIC PSYCHOSIS
     Dosage: 200 MG, QID
     Route: 048
     Dates: end: 20050621
  2. TEGRETOL [Suspect]
     Dosage: 40 X 200 MG TABLETS, ONCE/SINGLE
     Route: 048
     Dates: start: 20050622, end: 20050623
  3. TEGRETOL [Suspect]
     Dosage: 200 MG/DAY
     Route: 048
     Dates: start: 20050627
  4. DEPAKENE [Suspect]
     Indication: EPILEPTIC PSYCHOSIS
     Dosage: 200 MG, TID
     Route: 048
  5. DEPAKENE [Suspect]
     Dosage: 100 X 200 MG TABLETS, ONCE/SINGLE
     Route: 048
     Dates: start: 20050622, end: 20050623
  6. SENNOSIDE [Concomitant]
     Indication: CONSTIPATION
     Route: 048
     Dates: end: 20050623
  7. RISPERDAL [Concomitant]
     Indication: SCHIZOPHRENIA
     Dosage: 6 MG/DAY
     Route: 048
     Dates: end: 20050623
  8. AKINETON [Concomitant]
     Indication: PARKINSON'S DISEASE
     Dosage: 3 MG/DAY
     Route: 048
     Dates: end: 20050623
  9. LEVOTOMIN [Concomitant]
     Indication: SCHIZOPHRENIA
     Dosage: 5 MG/DAY
     Route: 048
     Dates: end: 20050623
  10. SILECE [Concomitant]
     Indication: INSOMNIA
     Dosage: 2 MG/DAY
     Route: 048
     Dates: end: 20050623
  11. POLARAMINE [Concomitant]
     Indication: RHINITIS ALLERGIC
     Dosage: 4 MG/DAY
     Route: 048
     Dates: end: 20050623

REACTIONS (10)
  - AGITATION [None]
  - ALTERED STATE OF CONSCIOUSNESS [None]
  - BLOOD AMYLASE INCREASED [None]
  - DRUG LEVEL INCREASED [None]
  - DRUG TOXICITY [None]
  - GAMMA-GLUTAMYLTRANSFERASE INCREASED [None]
  - INTENTIONAL OVERDOSE [None]
  - SOMNOLENCE [None]
  - SUICIDE ATTEMPT [None]
  - VOMITING [None]
